FAERS Safety Report 5272175-6 (Version None)
Quarter: 2007Q1

REPORT INFORMATION
  Report Type: 
  Country: None (occurrence: None)
  Receive Date: 20070320
  Receipt Date: 20070320
  Transmission Date: 20070707
  Serious: Yes (Life-Threatening)
  Sender: FDA-Public Use
  Company Number: None

PATIENT
  Sex: Female
  Weight: 64 kg

DRUGS (1)
  1. AMPICILLIN [Suspect]
     Indication: PROPHYLAXIS
     Dosage: 1 GRAM IVPB
     Route: 042
     Dates: start: 20060306

REACTIONS (2)
  - DYSPNOEA [None]
  - INFUSION RELATED REACTION [None]
